FAERS Safety Report 11758999 (Version 1)
Quarter: 2015Q4

REPORT INFORMATION
  Report Type: Spontaneous
  Country: IT (occurrence: IT)
  Receive Date: 20151120
  Receipt Date: 20151120
  Transmission Date: 20160304
  Serious: Yes (Hospitalization)
  Sender: FDA-Public Use
  Company Number: IT-DEP_03189_2015

PATIENT
  Age: 64 Year
  Sex: Female

DRUGS (7)
  1. CONGESCOR (BISOPROLOL FUMARATE) [Concomitant]
     Dosage: DF
  2. GABAPENTIN. [Concomitant]
     Active Substance: GABAPENTIN
     Dosage: DF
  3. DELTACORTENE (PREDNISONE) [Concomitant]
     Active Substance: PREDNISONE
     Dosage: DF
  4. TRIATEC /00885601/ (RAMIPRIL) [Concomitant]
     Dosage: DF
  5. PANTORC (PANTOPRAZOLE SODIUM SESQUIHYDRATE) [Concomitant]
     Active Substance: PANTOPRAZOLE SODIUM
     Dosage: DF
  6. NATECAL D3 (CALCIUM CARBONATE, COLECALCIFEROL) [Concomitant]
     Dosage: DF
  7. PALEXIA [Suspect]
     Active Substance: TAPENTADOL HYDROCHLORIDE
     Indication: ARTHRALGIA
     Route: 048
     Dates: start: 20110101

REACTIONS (4)
  - Ileus paralytic [Recovered/Resolved]
  - Drug-induced liver injury [None]
  - Urinary retention [None]
  - Hypotonia [None]

NARRATIVE: CASE EVENT DATE: 20150625
